FAERS Safety Report 25167960 (Version 1)
Quarter: 2025Q2

REPORT INFORMATION
  Report Type: Spontaneous
  Country: US (occurrence: US)
  Receive Date: 20250407
  Receipt Date: 20250407
  Transmission Date: 20250716
  Serious: Yes (Other)
  Sender: ELI LILLY AND CO
  Company Number: US-ELI_LILLY_AND_COMPANY-US202503026372

PATIENT
  Age: 75 Year
  Sex: Female

DRUGS (3)
  1. HUMATROPE [Suspect]
     Active Substance: SOMATROPIN
     Indication: Hormone replacement therapy
     Route: 065
  2. HUMATROPE [Suspect]
     Active Substance: SOMATROPIN
     Dosage: 0.5 MG, DAILY
     Route: 058
     Dates: start: 20250225, end: 20250325
  3. HUMATROPE [Suspect]
     Active Substance: SOMATROPIN
     Dosage: 0.5 MG, DAILY
     Route: 058
     Dates: start: 202503

REACTIONS (5)
  - Brain natriuretic peptide increased [Unknown]
  - Cerebrovascular accident [Recovering/Resolving]
  - Cardiac failure [Recovering/Resolving]
  - Troponin increased [Unknown]
  - Bone pain [Recovered/Resolved]

NARRATIVE: CASE EVENT DATE: 20250325
